FAERS Safety Report 8963061 (Version 1)
Quarter: 2012Q4

REPORT INFORMATION
  Report Type: 
  Country: US (occurrence: US)
  Receive Date: 20121214
  Receipt Date: 20121214
  Transmission Date: 20130627
  Serious: No
  Sender: FDA-Public Use
  Company Number: US-PFIZER INC-2012312156

PATIENT
  Age: 53 Year
  Sex: Female
  Weight: 82.99 kg

DRUGS (2)
  1. AMLODIPINE BESILATE [Suspect]
     Indication: BLOOD PRESSURE HIGH
     Dosage: 10 mg, 1x/day
     Route: 048
     Dates: start: 2012, end: 201209
  2. POTASSIUM [Concomitant]
     Dosage: UNK

REACTIONS (5)
  - Blood pressure increased [Recovered/Resolved]
  - Activities of daily living impaired [Recovered/Resolved]
  - Impaired driving ability [Recovered/Resolved]
  - Confusional state [Recovered/Resolved]
  - Lethargy [Recovered/Resolved]
